FAERS Safety Report 23943127 (Version 1)
Quarter: 2024Q2

REPORT INFORMATION
  Report Type: Spontaneous
  Country: JP (occurrence: JP)
  Receive Date: 20240605
  Receipt Date: 20240605
  Transmission Date: 20240715
  Serious: Yes (Death, Hospitalization, Other)
  Sender: FDA-Public Use
  Company Number: JP-ELI_LILLY_AND_COMPANY-JP202405018742

PATIENT
  Age: 81 Year

DRUGS (4)
  1. CYRAMZA [Suspect]
     Active Substance: RAMUCIRUMAB
     Indication: Rectosigmoid cancer
     Dosage: UNK
     Route: 041
     Dates: start: 20240522, end: 20240526
  2. FLUOROURACIL [Suspect]
     Active Substance: FLUOROURACIL
     Indication: Rectosigmoid cancer
     Dosage: UNK
     Dates: start: 20240522
  3. LEVOLEUCOVORIN CALCIUM [Concomitant]
     Active Substance: LEVOLEUCOVORIN CALCIUM
     Indication: Rectosigmoid cancer
     Dosage: UNK
     Dates: start: 20240522
  4. IRINOTECAN [Concomitant]
     Active Substance: IRINOTECAN
     Indication: Rectosigmoid cancer
     Dosage: UNK
     Dates: start: 20240522

REACTIONS (4)
  - Gastrointestinal haemorrhage [Fatal]
  - Back pain [Unknown]
  - Malaise [Unknown]
  - Fistula [Unknown]

NARRATIVE: CASE EVENT DATE: 20240526
